FAERS Safety Report 11844747 (Version 1)
Quarter: 2015Q4

REPORT INFORMATION
  Report Type: Spontaneous
  Country: US (occurrence: US)
  Receive Date: 20151217
  Receipt Date: 20151217
  Transmission Date: 20160305
  Serious: Yes (Other)
  Sender: FDA-Public Use
  Company Number: US-PFIZER INC-2015426233

PATIENT
  Sex: Male
  Weight: 81 kg

DRUGS (7)
  1. WARFARIN EXELAN [Concomitant]
     Indication: ANTICOAGULANT THERAPY
     Dosage: 5MG, ONE AND A HALF ON MWF
  2. ROBITUSSIN COUGH AND CHEST CONGESTION DM MAX [Suspect]
     Active Substance: DEXTROMETHORPHAN HYDROBROMIDE\GUAIFENESIN
     Indication: NASAL CONGESTION
  3. ROBITUSSIN COUGH AND CHEST CONGESTION DM MAX [Suspect]
     Active Substance: DEXTROMETHORPHAN HYDROBROMIDE\GUAIFENESIN
     Indication: NASOPHARYNGITIS
     Dosage: USUALLY TOOK 1 TABLESPOON IN THE MORNING, 2 TABLESPOONS IN MIDAFTERNOON, 1 TABLESPOON IN EVENING
     Route: 048
     Dates: end: 20151202
  4. ROBITUSSIN COUGH AND CHEST CONGESTION DM MAX [Suspect]
     Active Substance: DEXTROMETHORPHAN HYDROBROMIDE\GUAIFENESIN
     Indication: COUGH
  5. ROBITUSSIN COUGH AND CHEST CONGESTION DM MAX [Suspect]
     Active Substance: DEXTROMETHORPHAN HYDROBROMIDE\GUAIFENESIN
     Indication: PRODUCTIVE COUGH
  6. WARFARIN EXELAN [Concomitant]
     Dosage: 5MG, THE OTHER DAYS ONE TABLET
  7. COUMADIN [Concomitant]
     Active Substance: WARFARIN SODIUM

REACTIONS (4)
  - Heart rate irregular [Not Recovered/Not Resolved]
  - Parkinson^s disease [Unknown]
  - Intentional product use issue [Unknown]
  - Contraindicated drug administered [Unknown]

NARRATIVE: CASE EVENT DATE: 2015
